FAERS Safety Report 8840617 (Version 1)
Quarter: 2012Q4

REPORT INFORMATION
  Report Type: 
  Country: US (occurrence: US)
  Receive Date: 20121015
  Receipt Date: 20121015
  Transmission Date: 20130627
  Serious: Yes (Hospitalization, Disabling, Other)
  Sender: FDA-Public Use
  Company Number: US-009507513-2011SP051913

PATIENT

DRUGS (2)
  1. NUVARING [Suspect]
     Indication: CONTRACEPTION
     Dosage: UNK
     Route: 067
     Dates: start: 200412, end: 200810
  2. NUVARING [Suspect]
     Dosage: UNK
     Route: 067
     Dates: start: 20081118, end: 20091205

REACTIONS (23)
  - Cerebrovascular accident [Recovered/Resolved with Sequelae]
  - Cerebral haemorrhage [Unknown]
  - Superior sagittal sinus thrombosis [Recovered/Resolved]
  - Venous thrombosis [Recovered/Resolved with Sequelae]
  - Respiratory disorder [Unknown]
  - Hypercoagulation [Recovered/Resolved]
  - Blood disorder [Unknown]
  - Sinus headache [Unknown]
  - Cervical dysplasia [Unknown]
  - Papilloma viral infection [Unknown]
  - Anxiety [Unknown]
  - Sinusitis [Unknown]
  - Otitis media acute [Recovered/Resolved]
  - Upper respiratory tract infection [Recovered/Resolved]
  - Ear infection [Unknown]
  - Vulvovaginitis [Unknown]
  - Depression [Unknown]
  - Night sweats [Unknown]
  - Insomnia [Unknown]
  - Dizziness [Unknown]
  - Vaginal discharge [Unknown]
  - Dermatitis contact [Unknown]
  - Cervical dysplasia [Unknown]
